FAERS Safety Report 5692755-3 (Version None)
Quarter: 2008Q2

REPORT INFORMATION
  Report Type: 
  Country: None (occurrence: None)
  Receive Date: 20080401
  Receipt Date: 20080321
  Transmission Date: 20081010
  Serious: No
  Sender: FDA-Public Use
  Company Number: 232513J08USA

PATIENT
  Age: 52 Year
  Sex: Female

DRUGS (3)
  1. REBIF [Suspect]
     Indication: MULTIPLE SCLEROSIS
     Dates: start: 20061201, end: 20070801
  2. LEXAPRO [Concomitant]
  3. GABAPENTIN [Concomitant]

REACTIONS (1)
  - UNEVALUABLE EVENT [None]
